FAERS Safety Report 5597902-X (Version None)
Quarter: 2007Q4

REPORT INFORMATION
  Report Type: 
  Country: None (occurrence: None)
  Receive Date: 20071221
  Receipt Date: 20070918
  Transmission Date: 20080405
  Serious: Yes (Other)
  Sender: FDA-Public Use
  Company Number: PHEH2007US12583

PATIENT
  Age: 13 Year
  Sex: Female

DRUGS (2)
  1. FOCALIN XR [Suspect]
     Dosage: 10 MG
  2. ZOLOFT [Concomitant]

REACTIONS (3)
  - DEPRESSION [None]
  - NAUSEA [None]
  - VOMITING [None]
